FAERS Safety Report 5632019-7 (Version None)
Quarter: 2008Q1

REPORT INFORMATION
  Report Type: 
  Country: None (occurrence: None)
  Receive Date: 20080213
  Receipt Date: 20080201
  Transmission Date: 20080703
  Serious: Yes (Hospitalization)
  Sender: FDA-Public Use
  Company Number: CIP08000203

PATIENT
  Age: 67 Year
  Sex: Female

DRUGS (1)
  1. ACTONEL [Suspect]
     Indication: OSTEOPOROSIS
     Dosage: 2.5 MG DAILY, ORAL
     Route: 048

REACTIONS (7)
  - CELLULITIS [None]
  - IMPAIRED HEALING [None]
  - OEDEMA MOUTH [None]
  - ORAL PAIN [None]
  - PURULENT DISCHARGE [None]
  - TOOTH EXTRACTION [None]
  - TRISMUS [None]
